FAERS Safety Report 21796560 (Version 1)
Quarter: 2022Q4

REPORT INFORMATION
  Report Type: Spontaneous
  Country: US (occurrence: US)
  Receive Date: 20221229
  Receipt Date: 20221229
  Transmission Date: 20230113
  Serious: Yes (Other)
  Sender: FDA-Public Use
  Company Number: US-PRINSTON PHARMACEUTICAL INC.-2022PRN00464

PATIENT
  Age: 63 Year
  Sex: Female

DRUGS (4)
  1. LOSARTAN POTASSIUM [Suspect]
     Active Substance: LOSARTAN POTASSIUM
     Indication: Hypertension
     Dosage: 50 MG, 1X/DAY
     Route: 048
  2. LOSARTAN POTASSIUM [Suspect]
     Active Substance: LOSARTAN POTASSIUM
     Dosage: 50 MG, 1X/DAY
     Route: 048
     Dates: end: 20221218
  3. LOSARTAN POTASSIUM [Suspect]
     Active Substance: LOSARTAN POTASSIUM
     Dosage: 50 MG, 1X/DAY, MORNING AT 7 AM
     Route: 048
     Dates: start: 20221219, end: 202212
  4. METFORMIN [Suspect]
     Active Substance: METFORMIN HYDROCHLORIDE

REACTIONS (15)
  - Diabetes mellitus [Unknown]
  - Mental impairment [Recovering/Resolving]
  - Cerebral disorder [Recovering/Resolving]
  - Confusional state [Recovering/Resolving]
  - Sedation [Recovering/Resolving]
  - Hypertension [Recovering/Resolving]
  - Performance status decreased [Recovering/Resolving]
  - Drug ineffective [Recovered/Resolved]
  - Pain [Unknown]
  - Dizziness [Recovering/Resolving]
  - Headache [Recovering/Resolving]
  - Unevaluable event [Recovering/Resolving]
  - Product quality issue [Not Recovered/Not Resolved]
  - Product availability issue [Recovered/Resolved]
  - Product contamination [Recovered/Resolved]

NARRATIVE: CASE EVENT DATE: 20221219
